FAERS Safety Report 17970484 (Version 1)
Quarter: 2020Q3

REPORT INFORMATION
  Report Type: Spontaneous
  Country: US (occurrence: US)
  Receive Date: 20200701
  Receipt Date: 20200701
  Transmission Date: 20201103
  Serious: Yes (Death, Other)
  Sender: FDA-Public Use
  Company Number: US-OREXO US, INC.-ORE202006-000047

PATIENT
  Age: 46 Year
  Sex: Female

DRUGS (11)
  1. BUPRENORPHINE / NALOXONE [Suspect]
     Active Substance: BUPRENORPHINE\NALOXONE
     Indication: PRODUCT USED FOR UNKNOWN INDICATION
     Route: 048
     Dates: end: 20181009
  2. PROPANOLOL [Concomitant]
     Active Substance: PROPRANOLOL HYDROCHLORIDE
     Dosage: 40 MG
     Dates: end: 20181009
  3. ESTRADIOL. [Concomitant]
     Active Substance: ESTRADIOL
     Dates: end: 20181009
  4. TRIAMCINOLONE ACETONIDE DIPOTASSIUM PHOSPHATE [Concomitant]
     Active Substance: TRIAMCINOLONE ACETONIDE
     Dates: end: 20181009
  5. PROMETHAZINE [Concomitant]
     Active Substance: PROMETHAZINE HYDROCHLORIDE
     Dates: end: 20181009
  6. TIZANIDINE. [Concomitant]
     Active Substance: TIZANIDINE
     Dates: end: 20181009
  7. CLONIDINE. [Concomitant]
     Active Substance: CLONIDINE
     Dates: end: 20181009
  8. PREGABALIN. [Concomitant]
     Active Substance: PREGABALIN
     Dosage: 300 MG
     Dates: end: 20181009
  9. QUETIAPINE. [Concomitant]
     Active Substance: QUETIAPINE
  10. FLUOXETINE [Concomitant]
     Active Substance: FLUOXETINE HYDROCHLORIDE
     Dosage: 40 MG
     Dates: end: 20181009
  11. AMITRIPTYLINE [Concomitant]
     Active Substance: AMITRIPTYLINE
     Dosage: 75 MG
     Dates: end: 20181009

REACTIONS (6)
  - Pain [Recovered/Resolved]
  - Spinal operation [Unknown]
  - Somnolence [Recovered/Resolved]
  - Drug abuse [Fatal]
  - Dyskinesia [Recovered/Resolved]
  - Overdose [Fatal]

NARRATIVE: CASE EVENT DATE: 20181009
